FAERS Safety Report 13066266 (Version 1)
Quarter: 2016Q4

REPORT INFORMATION
  Report Type: Spontaneous
  Country: EC (occurrence: EC)
  Receive Date: 20161227
  Receipt Date: 20161227
  Transmission Date: 20170207
  Serious: Yes (Hospitalization)
  Sender: FDA-Public Use
  Company Number: EC-INGENUS PHARMACEUTICALS NJ, LLC-ING201612-000186

PATIENT
  Age: 9 Year
  Sex: Male

DRUGS (4)
  1. PREDNISONE. [Concomitant]
     Active Substance: PREDNISONE
  2. PREDNISONE. [Concomitant]
     Active Substance: PREDNISONE
  3. CARISOPRODOL AND ASPIRIN [Suspect]
     Active Substance: ASPIRIN\CARISOPRODOL
     Indication: TAKAYASU^S ARTERITIS
  4. ENALAPRIL [Concomitant]
     Active Substance: ENALAPRIL
     Indication: TAKAYASU^S ARTERITIS

REACTIONS (2)
  - Product use issue [Unknown]
  - Cerebral haemorrhage [Unknown]
